FAERS Safety Report 10390117 (Version 1)
Quarter: 2014Q3

REPORT INFORMATION
  Report Type: Spontaneous
  Country: FR (occurrence: FR)
  Receive Date: 20140818
  Receipt Date: 20140818
  Transmission Date: 20150326
  Serious: Yes (Hospitalization)
  Sender: FDA-Public Use
  Company Number: FR-PFIZER INC-2014223572

PATIENT
  Age: 76 Year
  Sex: Male

DRUGS (6)
  1. SEROPLEX [Suspect]
     Active Substance: ESCITALOPRAM OXALATE
     Indication: DEPRESSION
     Dosage: 10 MG, 1X/DAY
     Route: 048
  2. FRAXODI [Concomitant]
     Active Substance: NADROPARIN CALCIUM
  3. IMOVANE [Concomitant]
     Active Substance: ZOPICLONE
  4. ZYVOXID [Suspect]
     Active Substance: LINEZOLID
     Dosage: 1200 MG, 1X/DAY
     Route: 048
     Dates: start: 20140725
  5. DECONTRACTYL [Concomitant]
  6. FLECAINE [Concomitant]
     Active Substance: FLECAINIDE

REACTIONS (4)
  - Hyperhidrosis [Not Recovered/Not Resolved]
  - Tremor [Not Recovered/Not Resolved]
  - Pyrexia [Unknown]
  - Tachycardia [Not Recovered/Not Resolved]

NARRATIVE: CASE EVENT DATE: 20140726
